FAERS Safety Report 11573039 (Version 7)
Quarter: 2016Q3

REPORT INFORMATION
  Report Type: Report from Study
  Country: FR (occurrence: FR)
  Receive Date: 20150929
  Receipt Date: 20160928
  Transmission Date: 20161109
  Serious: Yes (Death, Life-Threatening, Hospitalization)
  Sender: FDA-Public Use
  Company Number: FR-INCYTE CORPORATION-2015IN004661

PATIENT
  Age: 73 Year
  Sex: Male

DRUGS (4)
  1. JAKAFI [Suspect]
     Active Substance: RUXOLITINIB
     Indication: PRIMARY MYELOFIBROSIS
     Dosage: 40 MG, UNK
     Route: 048
     Dates: start: 20140404
  2. JAKAFI [Suspect]
     Active Substance: RUXOLITINIB
     Dosage: 20 MG, UNK
     Route: 048
     Dates: start: 20150904, end: 20150907
  3. TARCEVA [Concomitant]
     Active Substance: ERLOTINIB HYDROCHLORIDE
     Indication: MYELOFIBROSIS
     Dosage: 50 MG, UNK
     Route: 048
     Dates: start: 20150917
  4. TARDYFERON [Concomitant]
     Active Substance: FERROUS SULFATE
     Indication: PRODUCT USED FOR UNKNOWN INDICATION
     Dosage: UNK
     Route: 065
     Dates: start: 20150917

REACTIONS (12)
  - Respiratory distress [Fatal]
  - Cough [Fatal]
  - Second primary malignancy [Recovered/Resolved]
  - Bone disorder [None]
  - Atrial fibrillation [Recovered/Resolved]
  - Bronchitis [Unknown]
  - Haematoma [Recovered/Resolved]
  - Lung adenocarcinoma [Recovered/Resolved]
  - Lung infection [Recovered/Resolved]
  - Infection [Fatal]
  - Pulmonary embolism [Fatal]
  - General physical health deterioration [Fatal]

NARRATIVE: CASE EVENT DATE: 20150216
